FAERS Safety Report 4528978-6 (Version None)
Quarter: 2004Q4

REPORT INFORMATION
  Report Type: 
  Country: None (occurrence: None)
  Receive Date: 20041215
  Receipt Date: 20041215
  Transmission Date: 20050328
  Serious: Yes (Other)
  Sender: FDA-Public Use
  Company Number: None

PATIENT
  Age: 20 Year
  Sex: Female
  Weight: 54.4316 kg

DRUGS (1)
  1. SPIRONOLACTONE [Suspect]
     Indication: POLYCYSTIC OVARIES
     Dosage: 100 MGM BID
     Dates: start: 20041112

REACTIONS (2)
  - ERYTHEMA [None]
  - URTICARIA [None]
